FAERS Safety Report 14159871 (Version 1)
Quarter: 2017Q4

REPORT INFORMATION
  Report Type: Spontaneous
  Country: US (occurrence: US)
  Receive Date: 20171103
  Receipt Date: 20171103
  Transmission Date: 20180321
  Serious: No
  Sender: FDA-Public Use
  Company Number: US-AMGEN-USASP2017126240

PATIENT
  Age: 75 Year
  Sex: Female

DRUGS (1)
  1. EPOGEN [Suspect]
     Active Substance: ERYTHROPOIETIN
     Indication: ANAEMIA
     Dosage: 40000 UNIT, QWK (FOR 3 WEEKS)
     Route: 065

REACTIONS (5)
  - Iron overload [Not Recovered/Not Resolved]
  - Blood alkaline phosphatase increased [Unknown]
  - Serum ferritin abnormal [Not Recovered/Not Resolved]
  - Off label use [Unknown]
  - Blood bilirubin increased [Unknown]

NARRATIVE: CASE EVENT DATE: 201707
